FAERS Safety Report 12965494 (Version 10)
Quarter: 2018Q3

REPORT INFORMATION
  Report Type: Report from Study
  Country: BR (occurrence: BR)
  Receive Date: 20161122
  Receipt Date: 20180824
  Transmission Date: 20181010
  Serious: Yes (Other)
  Sender: FDA-Public Use
  Company Number: BR-TAKEDA-2016TUS021026

PATIENT
  Age: 61 Year
  Sex: Female
  Weight: 68 kg

DRUGS (1)
  1. VEDOLIZUMAB [Suspect]
     Active Substance: VEDOLIZUMAB
     Indication: CROHN^S DISEASE
     Dosage: 300 MG, UNK
     Route: 042
     Dates: start: 20160725

REACTIONS (10)
  - Dry mouth [Unknown]
  - Vitamin D decreased [Unknown]
  - Off label use [Unknown]
  - Pyrexia [Unknown]
  - Skin papilloma [Unknown]
  - Weight increased [Unknown]
  - Immunosuppression [Unknown]
  - Drug dose omission [Unknown]
  - Pneumonia [Unknown]
  - Delirium [Unknown]

NARRATIVE: CASE EVENT DATE: 201610
